FAERS Safety Report 13235166 (Version 1)
Quarter: 2017Q1

REPORT INFORMATION
  Report Type: Report from Study
  Country: US (occurrence: US)
  Receive Date: 20170215
  Receipt Date: 20170215
  Transmission Date: 20170428
  Serious: No
  Sender: FDA-Public Use
  Company Number: US-ASTRAZENECA-2013SE47301

PATIENT
  Age: 24514 Day
  Sex: Female
  Weight: 90.7 kg

DRUGS (4)
  1. GLYBURIDE. [Concomitant]
     Active Substance: GLYBURIDE
  2. METFORMIN [Concomitant]
     Active Substance: METFORMIN HYDROCHLORIDE
  3. BYETTA [Suspect]
     Active Substance: EXENATIDE
     Dosage: DOSE:2MG
     Route: 065
     Dates: start: 20130615
  4. BYDUREON [Suspect]
     Active Substance: EXENATIDE
     Route: 065

REACTIONS (5)
  - Visual acuity reduced [Unknown]
  - Memory impairment [Unknown]
  - Feeling abnormal [Unknown]
  - Decreased appetite [Unknown]
  - Product physical issue [Unknown]

NARRATIVE: CASE EVENT DATE: 20130615
